FAERS Safety Report 22532884 (Version 1)
Quarter: 2023Q2

REPORT INFORMATION
  Report Type: Spontaneous
  Country: RU (occurrence: RU)
  Receive Date: 20230607
  Receipt Date: 20230607
  Transmission Date: 20230722
  Serious: Yes (Death)
  Sender: FDA-Public Use
  Company Number: RU-002147023-PHHY2019RU096900

PATIENT
  Sex: Female
  Weight: 60 kg

DRUGS (6)
  1. ANAFRANIL [Suspect]
     Active Substance: CLOMIPRAMINE HYDROCHLORIDE
     Indication: Completed suicide
     Dosage: 2000 MG, QD
     Route: 048
     Dates: start: 20190325
  2. MILNACIPRAN HYDROCHLORIDE [Suspect]
     Active Substance: MILNACIPRAN HYDROCHLORIDE
     Indication: Completed suicide
     Dosage: UNK
     Route: 048
     Dates: start: 20190325
  3. ZYLAKSERA [Concomitant]
     Indication: Depression
     Dosage: UNK
     Route: 048
     Dates: start: 20190107
  4. OLANZAPINE [Concomitant]
     Active Substance: OLANZAPINE
     Indication: Depression
     Dosage: UNK
     Route: 048
     Dates: start: 20190107
  5. ZOLOFT [Concomitant]
     Active Substance: SERTRALINE HYDROCHLORIDE
     Indication: Depression
     Dosage: UNK
     Route: 048
     Dates: start: 20190107
  6. BRINTELLIX [Concomitant]
     Active Substance: VORTIOXETINE HYDROBROMIDE
     Indication: Depression
     Dosage: UNK
     Route: 048
     Dates: start: 20190107

REACTIONS (1)
  - Death [Fatal]

NARRATIVE: CASE EVENT DATE: 20190325
